FAERS Safety Report 20439634 (Version 1)
Quarter: 2022Q1

REPORT INFORMATION
  Report Type: Spontaneous
  Country: US (occurrence: None)
  Receive Date: 20220204
  Receipt Date: 20220204
  Transmission Date: 20220423
  Serious: Yes (Other)
  Sender: FDA-Public Use
  Company Number: None

PATIENT
  Age: 72 Year
  Sex: Female
  Weight: 60.3 kg

DRUGS (2)
  1. LOMUSTINE [Suspect]
     Active Substance: LOMUSTINE
     Indication: Glioblastoma multiforme
     Dosage: OTHER FREQUENCY : ONCE AT BEDTIME;?
     Route: 048
     Dates: start: 20210429, end: 20211119
  2. AVASTIN [Concomitant]
     Active Substance: BEVACIZUMAB
     Dates: start: 20210429, end: 20211203

REACTIONS (1)
  - Fatigue [None]

NARRATIVE: CASE EVENT DATE: 20211117
